FAERS Safety Report 10880614 (Version 26)
Quarter: 2016Q3

REPORT INFORMATION
  Report Type: Spontaneous
  Country: CA (occurrence: CA)
  Receive Date: 20150303
  Receipt Date: 20160727
  Transmission Date: 20161109
  Serious: Yes (Hospitalization, Other)
  Sender: FDA-Public Use
  Company Number: CA-ROCHE-1545435

PATIENT
  Age: 50 Year
  Sex: Female

DRUGS (41)
  1. XOLAIR [Suspect]
     Active Substance: OMALIZUMAB
     Route: 058
     Dates: start: 20111031
  2. XOLAIR [Suspect]
     Active Substance: OMALIZUMAB
     Route: 058
     Dates: start: 20160504
  3. XOLAIR [Suspect]
     Active Substance: OMALIZUMAB
     Indication: ASTHMA
     Route: 058
     Dates: start: 20110210
  4. XOLAIR [Suspect]
     Active Substance: OMALIZUMAB
     Route: 058
  5. XOLAIR [Suspect]
     Active Substance: OMALIZUMAB
     Route: 058
     Dates: start: 20140403
  6. XOLAIR [Suspect]
     Active Substance: OMALIZUMAB
     Route: 058
     Dates: start: 20141030
  7. XOLAIR [Suspect]
     Active Substance: OMALIZUMAB
     Route: 058
     Dates: start: 20150514
  8. XOLAIR [Suspect]
     Active Substance: OMALIZUMAB
     Route: 058
     Dates: start: 20151223
  9. SPIRIVA [Concomitant]
     Active Substance: TIOTROPIUM BROMIDE MONOHYDRATE
     Indication: PRODUCT USED FOR UNKNOWN INDICATION
  10. XOLAIR [Suspect]
     Active Substance: OMALIZUMAB
     Route: 058
     Dates: start: 20160627
  11. XOLAIR [Suspect]
     Active Substance: OMALIZUMAB
     Route: 058
     Dates: start: 20120926
  12. XOLAIR [Suspect]
     Active Substance: OMALIZUMAB
     Route: 058
     Dates: start: 20130904
  13. XOLAIR [Suspect]
     Active Substance: OMALIZUMAB
     Route: 058
     Dates: start: 20131002
  14. XOLAIR [Suspect]
     Active Substance: OMALIZUMAB
     Route: 058
     Dates: start: 20140123
  15. XOLAIR [Suspect]
     Active Substance: OMALIZUMAB
     Route: 058
     Dates: start: 20140320
  16. XOLAIR [Suspect]
     Active Substance: OMALIZUMAB
     Route: 058
     Dates: start: 20140422
  17. XOLAIR [Suspect]
     Active Substance: OMALIZUMAB
     Route: 058
     Dates: start: 20141217
  18. XOLAIR [Suspect]
     Active Substance: OMALIZUMAB
     Route: 058
     Dates: start: 20110825
  19. ADVAIR HFA [Concomitant]
     Active Substance: FLUTICASONE PROPIONATE\SALMETEROL XINAFOATE
     Indication: PRODUCT USED FOR UNKNOWN INDICATION
     Route: 065
     Dates: start: 201201
  20. XOLAIR [Suspect]
     Active Substance: OMALIZUMAB
     Route: 058
     Dates: start: 20141111
  21. XOLAIR [Suspect]
     Active Substance: OMALIZUMAB
     Route: 058
     Dates: start: 20150805
  22. ZENHALE [Concomitant]
     Active Substance: FORMOTEROL FUMARATE\MOMETASONE FUROATE
     Route: 065
     Dates: end: 201201
  23. XOLAIR [Suspect]
     Active Substance: OMALIZUMAB
     Route: 058
     Dates: start: 20110601
  24. XOLAIR [Suspect]
     Active Substance: OMALIZUMAB
     Route: 058
     Dates: start: 20131111
  25. XOLAIR [Suspect]
     Active Substance: OMALIZUMAB
     Route: 058
     Dates: start: 20131227
  26. XOLAIR [Suspect]
     Active Substance: OMALIZUMAB
     Route: 058
     Dates: start: 20140501
  27. XOLAIR [Suspect]
     Active Substance: OMALIZUMAB
     Dosage: UNK
     Route: 058
     Dates: start: 20160601
  28. XOLAIR [Suspect]
     Active Substance: OMALIZUMAB
     Route: 058
     Dates: start: 20111003
  29. XOLAIR [Suspect]
     Active Substance: OMALIZUMAB
     Route: 058
     Dates: start: 20130710
  30. XOLAIR [Suspect]
     Active Substance: OMALIZUMAB
     Route: 058
     Dates: start: 20150219
  31. ALVESCO [Concomitant]
     Active Substance: CICLESONIDE
     Indication: PRODUCT USED FOR UNKNOWN INDICATION
  32. XOLAIR [Suspect]
     Active Substance: OMALIZUMAB
     Route: 058
     Dates: start: 20120425
  33. XOLAIR [Suspect]
     Active Substance: OMALIZUMAB
     Route: 058
     Dates: start: 20120523
  34. XOLAIR [Suspect]
     Active Substance: OMALIZUMAB
     Route: 058
     Dates: start: 20130411
  35. XOLAIR [Suspect]
     Active Substance: OMALIZUMAB
     Route: 058
     Dates: start: 20140306
  36. XOLAIR [Suspect]
     Active Substance: OMALIZUMAB
     Route: 058
     Dates: start: 20150205
  37. XOLAIR [Suspect]
     Active Substance: OMALIZUMAB
     Route: 058
     Dates: start: 20160322
  38. XOLAIR [Suspect]
     Active Substance: OMALIZUMAB
     Route: 058
     Dates: start: 20160713
  39. COMBIVENT [Concomitant]
     Active Substance: ALBUTEROL SULFATE\IPRATROPIUM BROMIDE
     Route: 065
     Dates: start: 201507
  40. DILTIAZEM. [Concomitant]
     Active Substance: DILTIAZEM
  41. GAVISCON (CANADA) [Concomitant]

REACTIONS (60)
  - Blood pressure increased [Not Recovered/Not Resolved]
  - Forced expiratory volume decreased [Unknown]
  - Respiratory rate increased [Unknown]
  - Frustration tolerance decreased [Unknown]
  - Balance disorder [Unknown]
  - Musculoskeletal discomfort [Unknown]
  - Joint swelling [Unknown]
  - Pyrexia [Unknown]
  - Diarrhoea [Unknown]
  - Pain in extremity [Unknown]
  - Gastrooesophageal reflux disease [Unknown]
  - Tremor [Unknown]
  - Fall [Unknown]
  - Oral candidiasis [Unknown]
  - Infection [Unknown]
  - Alopecia [Not Recovered/Not Resolved]
  - Paraesthesia [Recovered/Resolved]
  - Fatigue [Not Recovered/Not Resolved]
  - Feeling abnormal [Unknown]
  - Pollakiuria [Unknown]
  - Carbon dioxide increased [Unknown]
  - Asthma [Not Recovered/Not Resolved]
  - Chest pain [Unknown]
  - Stress [Not Recovered/Not Resolved]
  - Insomnia [Unknown]
  - Tendonitis [Not Recovered/Not Resolved]
  - Body temperature decreased [Not Recovered/Not Resolved]
  - Dyspepsia [Unknown]
  - Pneumonia [Unknown]
  - Joint injury [Unknown]
  - Asthenia [Unknown]
  - Peak expiratory flow rate decreased [Unknown]
  - Lower respiratory tract congestion [Not Recovered/Not Resolved]
  - Peripheral swelling [Unknown]
  - Gait disturbance [Unknown]
  - Odynophagia [Unknown]
  - Poor quality sleep [Unknown]
  - Blood glucose abnormal [Unknown]
  - Malaise [Not Recovered/Not Resolved]
  - Peak expiratory flow rate abnormal [Unknown]
  - Oropharyngeal pain [Unknown]
  - Nasopharyngitis [Unknown]
  - Drug ineffective [Unknown]
  - Crepitations [Unknown]
  - Humidity intolerance [Unknown]
  - Weight decreased [Unknown]
  - Bronchitis [Unknown]
  - Hypersensitivity [Unknown]
  - Bladder disorder [Unknown]
  - Muscle disorder [Unknown]
  - General physical health deterioration [Unknown]
  - Breath sounds abnormal [Unknown]
  - Headache [Not Recovered/Not Resolved]
  - Vomiting [Unknown]
  - Palpitations [Unknown]
  - White blood cell count increased [Unknown]
  - Memory impairment [Unknown]
  - Muscle spasms [Unknown]
  - Seasonal allergy [Unknown]
  - Dizziness [Not Recovered/Not Resolved]

NARRATIVE: CASE EVENT DATE: 20110210
